FAERS Safety Report 9076564 (Version 2)
Quarter: 2014Q4

REPORT INFORMATION
  Report Type: Report from Study
  Country: NL (occurrence: NL)
  Receive Date: 20130130
  Receipt Date: 20141015
  Transmission Date: 20150529
  Serious: Yes (Death)
  Sender: FDA-Public Use
  Company Number: PHHY2013NL008214

PATIENT
  Sex: Male

DRUGS (1)
  1. ZOMETA [Suspect]
     Active Substance: ZOLEDRONIC ACID
     Indication: PROSTATE CANCER METASTATIC
     Dosage: 4 MG, EVERY 28 DAYS
     Route: 042
     Dates: start: 20111026

REACTIONS (2)
  - Terminal state [Fatal]
  - Prostate cancer metastatic [Fatal]
